FAERS Safety Report 10284696 (Version 1)
Quarter: 2014Q3

REPORT INFORMATION
  Report Type: Spontaneous
  Country: US (occurrence: US)
  Receive Date: 20140708
  Receipt Date: 20140708
  Transmission Date: 20150326
  Serious: Yes (Other)
  Sender: FDA-Public Use
  Company Number: US-GILEAD-2014-0107949

PATIENT

DRUGS (13)
  1. BUMEX [Concomitant]
     Active Substance: BUMETANIDE
  2. NEURONTIN [Concomitant]
     Active Substance: GABAPENTIN
  3. ZOLOFT [Concomitant]
     Active Substance: SERTRALINE HYDROCHLORIDE
  4. ALLOPURINOL. [Concomitant]
     Active Substance: ALLOPURINOL
  5. MUCINEX [Concomitant]
     Active Substance: GUAIFENESIN
  6. RANEXA [Suspect]
     Active Substance: RANOLAZINE
     Indication: PRODUCT USED FOR UNKNOWN INDICATION
     Dosage: 500 MG, BID
     Route: 065
  7. NOVOLOG [Concomitant]
     Active Substance: INSULIN ASPART
  8. LIPITOR [Concomitant]
     Active Substance: ATORVASTATIN CALCIUM
  9. PLAVIX [Concomitant]
     Active Substance: CLOPIDOGREL BISULFATE
  10. LAD ACETONE [Concomitant]
  11. ASA [Concomitant]
     Active Substance: ASPIRIN
  12. ZANTAC [Concomitant]
     Active Substance: RANITIDINE HYDROCHLORIDE
  13. ADVAIR HFA [Concomitant]
     Active Substance: FLUTICASONE PROPIONATE\SALMETEROL XINAFOATE

REACTIONS (7)
  - Aortic valve replacement [Unknown]
  - Hypertension [Unknown]
  - Diabetes mellitus [Unknown]
  - Chronic obstructive pulmonary disease [Unknown]
  - Unevaluable event [Unknown]
  - Coronary artery disease [Unknown]
  - Fall [Unknown]
